FAERS Safety Report 12843740 (Version 2)
Quarter: 2016Q4

REPORT INFORMATION
  Report Type: Report from Study
  Country: None (occurrence: AU)
  Receive Date: 20161013
  Receipt Date: 20161014
  Transmission Date: 20170207
  Serious: Yes (Other)
  Sender: FDA-Public Use
  Company Number: AU-ABBVIE-16K-008-1749740-00

PATIENT
  Age: 45 Year
  Sex: Female

DRUGS (2)
  1. ENBREL [Suspect]
     Active Substance: ETANERCEPT
     Indication: PSORIATIC ARTHROPATHY
     Route: 065
     Dates: start: 201110
  2. HUMIRA [Suspect]
     Active Substance: ADALIMUMAB
     Indication: PSORIATIC ARTHROPATHY
     Route: 058
     Dates: start: 201105, end: 201108

REACTIONS (13)
  - Crohn^s disease [Unknown]
  - Urticaria [Unknown]
  - Hepatic steatosis [Unknown]
  - Frequent bowel movements [Unknown]
  - Biliary dilatation [Unknown]
  - Psoriatic arthropathy [Unknown]
  - Malaise [Unknown]
  - Musculoskeletal stiffness [Unknown]
  - Liver function test abnormal [Not Recovered/Not Resolved]
  - Cholelithiasis [Unknown]
  - Spinal pain [Recovered/Resolved]
  - Pustular psoriasis [Unknown]
  - Gastrointestinal disorder [Unknown]
